FAERS Safety Report 19483968 (Version 1)
Quarter: 2021Q3

REPORT INFORMATION
  Report Type: Spontaneous
  Country: US (occurrence: US)
  Receive Date: 20210701
  Receipt Date: 20210701
  Transmission Date: 20211014
  Serious: Yes (Disabling)
  Sender: FDA-Public Use
  Company Number: US-ALKERMES INC.-ALK-2021-003250

PATIENT
  Sex: Male

DRUGS (3)
  1. VIVITROL [Suspect]
     Active Substance: NALTREXONE
     Indication: ALCOHOLISM
     Dosage: 380 MILLIGRAM, QMO
     Route: 030
     Dates: start: 202104
  2. VIVITROL [Suspect]
     Active Substance: NALTREXONE
     Dosage: 380 MILLIGRAM, QMO
     Route: 030
  3. NALTREXONE [Concomitant]
     Active Substance: NALTREXONE
     Indication: ALCOHOLISM
     Dosage: UNK
     Route: 065
     Dates: end: 202104

REACTIONS (15)
  - Tooth erosion [Recovered/Resolved]
  - Jaw disorder [Unknown]
  - Stress [Not Recovered/Not Resolved]
  - Restlessness [Not Recovered/Not Resolved]
  - Tooth extraction [Recovered/Resolved]
  - Nightmare [Not Recovered/Not Resolved]
  - Panic attack [Not Recovered/Not Resolved]
  - Bruxism [Unknown]
  - Drug tolerance [Not Recovered/Not Resolved]
  - Anxiety [Not Recovered/Not Resolved]
  - Initial insomnia [Not Recovered/Not Resolved]
  - Depression [Not Recovered/Not Resolved]
  - Disability [Not Recovered/Not Resolved]
  - Tooth loss [Recovered/Resolved]
  - Insomnia [Not Recovered/Not Resolved]
